FAERS Safety Report 23708557 (Version 1)
Quarter: 2024Q2

REPORT INFORMATION
  Report Type: Spontaneous
  Country: CN (occurrence: CN)
  Receive Date: 20240404
  Receipt Date: 20240404
  Transmission Date: 20240716
  Serious: Yes (Other)
  Sender: FDA-Public Use
  Company Number: None

PATIENT
  Age: 49 Year
  Sex: Female

DRUGS (6)
  1. CYCLOPHOSPHAMIDE [Suspect]
     Active Substance: CYCLOPHOSPHAMIDE
     Indication: Breast cancer female
     Dosage: 0.96 G, ONE TIME IN ONE DAY, DILUTED WITH 30 ML OF SODIUM CHLORIDE
     Route: 042
     Dates: start: 20240212, end: 20240212
  2. SODIUM CHLORIDE [Suspect]
     Active Substance: SODIUM CHLORIDE
     Indication: Medication dilution
     Dosage: 30 ML, ONE TIME IN ONE DAY, USED TO DILUTE 0.96 G CYCLOPHOSPHAMIDE
     Route: 042
     Dates: start: 20240212, end: 20240212
  3. DEXTROSE [Suspect]
     Active Substance: DEXTROSE\DEXTROSE MONOHYDRATE
     Indication: Medication dilution
     Dosage: 250 ML, ONE TIME IN ONE DAY, USED TO DILUTE 40 MG OF DOXORUBICIN HYDROCHLORIDE LIPOSOME, STRENGH: 5%
     Route: 041
  4. DOXORUBICIN HYDROCHLORIDE [Suspect]
     Active Substance: DOXORUBICIN HYDROCHLORIDE
     Indication: Breast cancer female
     Dosage: 40 MG, ONE TIME IN ONE DAY, DILUTED WITH 250 ML OF 5% GLUCOSE
     Route: 041
     Dates: start: 20240212, end: 20240212
  5. GRANULOCYTE COLONY-STIMULATING FACTOR NOS [Suspect]
     Active Substance: GRANULOCYTE COLONY-STIMULATING FACTOR NOS
     Dosage: 150 UG, AFTER THE END OF CHEMOTHERAPY
     Route: 058
     Dates: start: 20240214
  6. LEUCOGEN [Suspect]
     Active Substance: LEUCOGEN
     Dosage: 20 MG, THREE TIMES A DAY, AFTER THE END OF CHEMOTHERAPY
     Route: 048
     Dates: start: 20240214

REACTIONS (1)
  - Myelosuppression [Recovering/Resolving]

NARRATIVE: CASE EVENT DATE: 20240304
